FAERS Safety Report 14194364 (Version 1)
Quarter: 2017Q4

REPORT INFORMATION
  Report Type: Spontaneous
  Country: US (occurrence: US)
  Receive Date: 20171116
  Receipt Date: 20171116
  Transmission Date: 20180321
  Serious: No
  Sender: FDA-Public Use
  Company Number: US-PFIZER INC-2017492237

PATIENT
  Sex: Female

DRUGS (1)
  1. LYRICA [Suspect]
     Active Substance: PREGABALIN
     Dosage: UNK
     Dates: start: 20171103, end: 20171108

REACTIONS (7)
  - Somnolence [Unknown]
  - Gingival swelling [Unknown]
  - Dizziness [Unknown]
  - Gingival pain [Unknown]
  - Hypoaesthesia [Unknown]
  - Vision blurred [Unknown]
  - Nervousness [Unknown]
